FAERS Safety Report 8387423-3 (Version None)
Quarter: 2012Q2

REPORT INFORMATION
  Report Type: 
  Country: None (occurrence: None)
  Receive Date: 20120525
  Receipt Date: 20120517
  Transmission Date: 20120825
  Serious: Yes (Other)
  Sender: FDA-Public Use
  Company Number: CHPA2012NZ010493

PATIENT
  Sex: Female

DRUGS (6)
  1. SIMVASTATIN [Concomitant]
  2. CARBIMAZOLE [Concomitant]
  3. NICOTINE [Suspect]
     Indication: SMOKING CESSATION THERAPY
     Dosage: UNK
     Dates: start: 20120126, end: 20120216
  4. CALCITAB (CALCIUM CARBONATE) [Concomitant]
  5. AZELASTINE HYDROCHLORIDE [Concomitant]
  6. HABITROL [Suspect]
     Indication: SMOKING CESSATION THERAPY
     Dosage: 21 MG, QD
     Route: 062
     Dates: start: 20120126, end: 20120216

REACTIONS (4)
  - OVERDOSE [None]
  - TREATMENT NONCOMPLIANCE [None]
  - ANOSMIA [None]
  - AGEUSIA [None]
